FAERS Safety Report 10762448 (Version 2)
Quarter: 2015Q2

REPORT INFORMATION
  Report Type: Report from Study
  Country: US (occurrence: US)
  Receive Date: 20150204
  Receipt Date: 20150506
  Transmission Date: 20150821
  Serious: Yes (Death, Hospitalization)
  Sender: FDA-Public Use
  Company Number: PHEH2014US024603

PATIENT
  Sex: Female
  Weight: 75 kg

DRUGS (3)
  1. GLEEVEC [Suspect]
     Active Substance: IMATINIB MESYLATE
     Indication: CHRONIC MYELOID LEUKAEMIA
     Dosage: 400 MG, QD
     Route: 048
  2. GLEEVEC [Suspect]
     Active Substance: IMATINIB MESYLATE
     Indication: MULTIPLE SCLEROSIS
     Dosage: UNK
     Route: 065
  3. GLEEVEC [Suspect]
     Active Substance: IMATINIB MESYLATE
     Dosage: 400 MG, QD
     Route: 048

REACTIONS (6)
  - Central nervous system infection [Unknown]
  - Product use issue [Unknown]
  - Staphylococcal infection [Unknown]
  - Cardiac failure congestive [Unknown]
  - Drug resistance [Unknown]
  - Death [Fatal]
